FAERS Safety Report 4534917-4 (Version None)
Quarter: 2004Q4

REPORT INFORMATION
  Report Type: 
  Country: None (occurrence: None)
  Receive Date: 20041222
  Receipt Date: 20040802
  Transmission Date: 20050328
  Serious: No
  Sender: FDA-Public Use
  Company Number: US-BRISTOL-MYERS SQUIBB COMPANY-12658456

PATIENT
  Sex: Male
  Weight: 59 kg

DRUGS (4)
  1. PRAVACHOL [Suspect]
     Indication: BLOOD CHOLESTEROL INCREASED
     Dosage: STARTED AT 40 MG/DAY, INCREASED TO 80 MG/DAY AFTER 3 MONTHS
     Route: 048
  2. TOPROL-XL [Concomitant]
  3. DIOVAN [Concomitant]
  4. ASPIRIN [Concomitant]

REACTIONS (7)
  - CHEST PAIN [None]
  - DIFFICULTY IN WALKING [None]
  - FATIGUE [None]
  - GASTROOESOPHAGEAL REFLUX DISEASE [None]
  - MUSCULAR WEAKNESS [None]
  - SOMNOLENCE [None]
  - WEIGHT DECREASED [None]
